FAERS Safety Report 20297666 (Version 1)
Quarter: 2022Q1

REPORT INFORMATION
  Report Type: Spontaneous
  Country: ES (occurrence: ES)
  Receive Date: 20220105
  Receipt Date: 20220105
  Transmission Date: 20220423
  Serious: Yes (Other)
  Sender: FDA-Public Use
  Company Number: ES-HETERO-HET2021ES02358

PATIENT
  Age: 90 Year
  Sex: Female

DRUGS (3)
  1. DULOXETINE [Suspect]
     Active Substance: DULOXETINE
     Indication: Parkinson^s disease
     Dosage: 30 MILLIGRAM, QD
     Route: 065
  2. SAFINAMIDE [Suspect]
     Active Substance: SAFINAMIDE
     Indication: Parkinson^s disease
     Dosage: 50 MILLIGRAM, QD
     Route: 065
  3. TRAMADOL [Suspect]
     Active Substance: TRAMADOL
     Indication: Product used for unknown indication
     Dosage: 37.5 MILLIGRAM, QD
     Route: 065

REACTIONS (7)
  - Toxicity to various agents [Recovered/Resolved]
  - Confusional state [Recovering/Resolving]
  - Nervousness [Recovering/Resolving]
  - Myoclonus [Recovering/Resolving]
  - Sleep disorder [Recovering/Resolving]
  - Serum serotonin increased [Recovered/Resolved]
  - Product use in unapproved indication [Unknown]
